FAERS Safety Report 5486034-7 (Version None)
Quarter: 2007Q4

REPORT INFORMATION
  Report Type: 
  Country: None (occurrence: None)
  Receive Date: 20071012
  Receipt Date: 20070926
  Transmission Date: 20080405
  Serious: Yes (Other)
  Sender: FDA-Public Use
  Company Number: A-CH2007-17205

PATIENT
  Age: 54 Year
  Sex: Female
  Weight: 52 kg

DRUGS (14)
  1. TRACLEER [Suspect]
     Indication: PULMONARY HYPERTENSION
     Dosage: 65 MG, BID, ORAL, 31.25 MG, BID, ORAL
     Route: 048
     Dates: start: 20051020, end: 20051202
  2. TRACLEER [Suspect]
     Indication: PULMONARY HYPERTENSION
     Dosage: 65 MG, BID, ORAL, 31.25 MG, BID, ORAL
     Route: 048
     Dates: start: 20051203
  3. WARFARIN POTASSIUM (WARFARIN POTASSIUM) [Concomitant]
  4. BERAPROST SODIUM (BERAPROST SODIUM) [Concomitant]
  5. ALENDRONATE SODIUM [Concomitant]
  6. SPIRONOLACTONE [Concomitant]
  7. FUROSEMIDE [Concomitant]
  8. QUINAPRIL HCL [Concomitant]
  9. PREDNISOLONE ACETATE [Concomitant]
  10. REBAMIPIDE (REBAMIPIDE) [Concomitant]
  11. SUCRALFATE [Concomitant]
  12. MAGNESIUM OXIDE (MAGNESIUM OXIDE) [Concomitant]
  13. FLUNITRAZEPAM (FLUNITRAZEPAM) [Concomitant]
  14. CLOTIAZEPAM (CLOTIAZEPAM) [Concomitant]

REACTIONS (2)
  - GRANULOCYTOPENIA [None]
  - WHITE BLOOD CELL COUNT DECREASED [None]
